FAERS Safety Report 6355872-0 (Version None)
Quarter: 2009Q3

REPORT INFORMATION
  Report Type: 
  Country: None (occurrence: None)
  Receive Date: 20090915
  Receipt Date: 20070706
  Transmission Date: 20100115
  Serious: Yes (Hospitalization, Other)
  Sender: FDA-Public Use
  Company Number: US-ASTRAZENECA-2006UW23068

PATIENT
  Age: 57 Year
  Sex: Female
  Weight: 95.3 kg

DRUGS (11)
  1. SEROQUEL [Suspect]
     Indication: DEPRESSION
     Route: 048
     Dates: start: 20030101, end: 20050101
  2. SEROQUEL [Suspect]
     Indication: INSOMNIA
     Route: 048
     Dates: start: 20030101, end: 20050101
  3. SEROQUEL [Suspect]
     Indication: SLEEP DISORDER
     Route: 048
     Dates: start: 20030101, end: 20050101
  4. SEROQUEL [Suspect]
     Dosage: 35 MG-100 MG
     Route: 048
     Dates: start: 20040506
  5. SEROQUEL [Suspect]
     Dosage: 35 MG-100 MG
     Route: 048
     Dates: start: 20040506
  6. SEROQUEL [Suspect]
     Dosage: 35 MG-100 MG
     Route: 048
     Dates: start: 20040506
  7. PREDNISONE [Concomitant]
     Indication: ARTHRITIS
     Dosage: 2.5 MG - 5 MG
     Dates: start: 20020708
  8. RISPERDAL [Concomitant]
     Dates: start: 20050826
  9. AMBIEN/AMBIEN CR [Concomitant]
     Indication: SLEEP DISORDER
     Dosage: 5 MG QHS, 10 MG QHS PM, 12.5 MG QHS
     Route: 048
     Dates: start: 20031201
  10. SPIRONOLACTONE [Concomitant]
     Dosage: 50 MG - 150 MG,25 MG DISPENSED
     Route: 048
     Dates: start: 20040506
  11. LEXAPRO [Concomitant]
     Indication: SLEEP DISORDER
     Dosage: 10 MG - 20 MG
     Route: 048
     Dates: start: 20031201

REACTIONS (9)
  - ABDOMINAL ADHESIONS [None]
  - ABDOMINAL PAIN UPPER [None]
  - ANGINA PECTORIS [None]
  - ANGINA UNSTABLE [None]
  - ARTERIOSCLEROSIS [None]
  - CHEST PAIN [None]
  - DIABETES MELLITUS [None]
  - HYPERGLYCAEMIA [None]
  - TYPE 2 DIABETES MELLITUS [None]
